FAERS Safety Report 4607838-6 (Version None)
Quarter: 2005Q1

REPORT INFORMATION
  Report Type: 
  Country: None (occurrence: None)
  Receive Date: 20050310
  Receipt Date: 20050302
  Transmission Date: 20050727
  Serious: Yes (Death)
  Sender: FDA-Public Use
  Company Number: F01200403709

PATIENT
  Age: 62 Year
  Sex: Male

DRUGS (17)
  1. (OXALIPLATIN) - SOLUTION - 130 MG/M2 [Suspect]
     Indication: NON-SMALL CELL LUNG CANCER
     Dosage: 267 MG Q3W, INTRAVENOUS NOS
     Route: 042
     Dates: start: 20041110, end: 20041110
  2. (GEMCITABINE) - SOLUTION- 1000 MG/M2 [Suspect]
     Dosage: 2050 MG Q3W, INTRAVENOUS NOS
     Route: 042
     Dates: start: 20041113, end: 20041115
  3. TUSSIONEX (HYDROCOCONE/PHENYLTOLOXAMINE) [Concomitant]
  4. HYDROCODONE BITARTRATE [Concomitant]
  5. OXYCODONE HCL [Concomitant]
  6. MAGNESIUM SULFATE [Concomitant]
  7. KYTRIL [Concomitant]
  8. DECADRON (DEXAMETHASONE0 [Concomitant]
  9. CALCIUM GLUCONATE [Concomitant]
  10. MAGNESIUM SULFATE [Concomitant]
  11. MILK OF MAGNESIA [Concomitant]
  12. OXYCONTIN [Concomitant]
  13. ATIVAN [Concomitant]
  14. COMPAZINE [Concomitant]
  15. PROTONIX [Concomitant]
  16. PLAVIX [Concomitant]
  17. ASA (ACETYLSALICYLIC CID) [Concomitant]

REACTIONS (8)
  - ATRIAL FIBRILLATION [None]
  - CARDIAC ARREST [None]
  - CHEST PAIN [None]
  - DIFFICULTY IN WALKING [None]
  - HAEMOPTYSIS [None]
  - HAEMORRHAGE [None]
  - PLATELET COUNT DECREASED [None]
  - SPINAL DISORDER [None]
